FAERS Safety Report 4916486-X (Version None)
Quarter: 2006Q1

REPORT INFORMATION
  Report Type: 
  Country: None (occurrence: None)
  Receive Date: 20060220
  Receipt Date: 20060215
  Transmission Date: 20060701
  Serious: Yes (Other)
  Sender: FDA-Public Use
  Company Number: FR-RB-2793-2006

PATIENT
  Age: 25 Year
  Sex: Male

DRUGS (1)
  1. BUPRENORPHINE HCL [Suspect]
     Indication: DRUG USE FOR UNKNOWN INDICATION
     Dosage: DOSAGE UNKNOWN
     Route: 013

REACTIONS (8)
  - CYANOSIS [None]
  - INJECTION SITE PAIN [None]
  - INTENTIONAL DRUG MISUSE [None]
  - MOBILITY DECREASED [None]
  - NECROSIS [None]
  - RASH ERYTHEMATOUS [None]
  - RASH PUSTULAR [None]
  - SWELLING [None]
